FAERS Safety Report 9290581 (Version 1)
Quarter: 2013Q2

REPORT INFORMATION
  Report Type: Report from Study
  Country: ES (occurrence: ES)
  Receive Date: 20130515
  Receipt Date: 20130515
  Transmission Date: 20140414
  Serious: Yes (Hospitalization)
  Sender: FDA-Public Use
  Company Number: ES-SANOFI-AVENTIS-2013SA047875

PATIENT
  Age: 88 Year
  Sex: Female

DRUGS (6)
  1. FUROSEMIDE [Suspect]
     Indication: PRODUCT USED FOR UNKNOWN INDICATION
     Route: 048
     Dates: start: 20100129, end: 20100224
  2. RAMIPRIL [Interacting]
     Indication: PRODUCT USED FOR UNKNOWN INDICATION
     Route: 048
     Dates: start: 2005, end: 20100224
  3. SAETIL [Interacting]
     Indication: PRODUCT USED FOR UNKNOWN INDICATION
     Route: 048
     Dates: end: 20100224
  4. COROPRES [Concomitant]
     Route: 048
     Dates: start: 2005, end: 20100224
  5. PLAVIX [Concomitant]
     Route: 048
     Dates: start: 2005, end: 20100224
  6. ATORVASTATIN [Concomitant]
     Route: 048
     Dates: start: 2005, end: 20100224

REACTIONS (1)
  - Renal failure acute [Recovering/Resolving]
